FAERS Safety Report 6214201-3 (Version None)
Quarter: 2009Q2

REPORT INFORMATION
  Report Type: 
  Country: None (occurrence: None)
  Receive Date: 20090604
  Receipt Date: 20090529
  Transmission Date: 20091009
  Serious: Yes (Other)
  Sender: FDA-Public Use
  Company Number: JP-BRISTOL-MYERS SQUIBB COMPANY-14646210

PATIENT
  Age: 65 Year
  Sex: Male

DRUGS (3)
  1. ERBITUX [Suspect]
     Indication: COLON CANCER
     Dosage: INITIAL INF:29JAN09 3RD + RECENT INF:12FEB09
     Route: 042
     Dates: start: 20090129, end: 20090212
  2. POLARAMINE [Concomitant]
     Indication: PREMEDICATION
     Dosage: 0.7143 MG
     Route: 042
     Dates: start: 20090129, end: 20090212
  3. DECADRON [Concomitant]
     Indication: PREMEDICATION
     Dosage: 1.7143 MG
     Route: 042
     Dates: start: 20090129, end: 20090212

REACTIONS (1)
  - HYPERKALAEMIA [None]
